FAERS Safety Report 12772304 (Version 1)
Quarter: 2016Q3

REPORT INFORMATION
  Report Type: Spontaneous
  Country: US (occurrence: US)
  Receive Date: 20160922
  Receipt Date: 20160922
  Transmission Date: 20161109
  Serious: Yes (Hospitalization, Other)
  Sender: FDA-Public Use
  Company Number: US-REGENERON PHARMACEUTICALS, INC.-2016-19458

PATIENT

DRUGS (2)
  1. EYLEA [Suspect]
     Active Substance: AFLIBERCEPT
     Dosage: 2 MG MILLIGRAM(S), MONTHLY
     Route: 031
     Dates: start: 20160708, end: 20160708
  2. EYLEA [Suspect]
     Active Substance: AFLIBERCEPT
     Indication: NEOVASCULAR AGE-RELATED MACULAR DEGENERATION
     Dosage: 2 MG MILLIGRAM(S), MONTHLY
     Route: 031
     Dates: start: 20160415, end: 20160810

REACTIONS (5)
  - Hemianopia [Recovering/Resolving]
  - Cerebrovascular accident [Recovered/Resolved]
  - Jaw disorder [Recovered/Resolved]
  - Cerebral artery occlusion [Recovered/Resolved]
  - Migraine [Recovering/Resolving]

NARRATIVE: CASE EVENT DATE: 201604
